FAERS Safety Report 9633086 (Version 1)
Quarter: 2013Q4

REPORT INFORMATION
  Report Type: Spontaneous
  Country: US (occurrence: US)
  Receive Date: 20131018
  Receipt Date: 20131018
  Transmission Date: 20140711
  Serious: No
  Sender: FDA-Public Use
  Company Number: US-009507513-1309USA010654

PATIENT
  Sex: Female

DRUGS (3)
  1. REBETOL [Suspect]
     Indication: CHRONIC HEPATITIS C
     Dosage: 1400 MG, DIVIDED DOSES TWICE DAILY
     Route: 048
     Dates: start: 20130819
  2. VICTRELIS [Suspect]
     Indication: CHRONIC HEPATITIS C
     Dosage: UNK
     Route: 065
     Dates: start: 20130916
  3. PEGASYS [Suspect]
     Indication: CHRONIC HEPATITIS C
     Dosage: (180 UG , 1 IN 1) PROCLICK
     Route: 058
     Dates: start: 20130819

REACTIONS (12)
  - Mood swings [Unknown]
  - Anxiety [Unknown]
  - Restlessness [Unknown]
  - Anger [Unknown]
  - Crying [Unknown]
  - Influenza like illness [Unknown]
  - Hot flush [Unknown]
  - Chills [Unknown]
  - Insomnia [Unknown]
  - Gastrooesophageal reflux disease [Unknown]
  - Weight decreased [Unknown]
  - Fatigue [Unknown]
